FAERS Safety Report 8306057-X (Version None)
Quarter: 2012Q2

REPORT INFORMATION
  Report Type: 
  Country: None (occurrence: None)
  Receive Date: 20120423
  Receipt Date: 20120416
  Transmission Date: 20120825
  Serious: Yes (Other)
  Sender: FDA-Public Use
  Company Number: DE-ELI_LILLY_AND_COMPANY-DE201204003204

PATIENT
  Age: 76 Year
  Sex: Female

DRUGS (10)
  1. VALOCORDIN-DIAZEPAM [Concomitant]
  2. CALCIUM [Concomitant]
  3. FORTEO [Suspect]
     Indication: OSTEOPOROSIS
     Dosage: UNK, QD
     Route: 058
     Dates: start: 20120329
  4. AMLODIPINE BESYLATE [Concomitant]
  5. VALSARTAN [Concomitant]
  6. VITAMIN D [Concomitant]
  7. MOXONIDIN [Concomitant]
  8. NITROGLYCERIN SPRAY [Concomitant]
  9. PREDNISOLONE [Concomitant]
  10. BISOPROLOL FUMARATE [Concomitant]

REACTIONS (5)
  - BLOOD PRESSURE INADEQUATELY CONTROLLED [None]
  - POOR QUALITY SLEEP [None]
  - PAIN [None]
  - NAUSEA [None]
  - BLOOD PRESSURE INCREASED [None]
